FAERS Safety Report 9351003 (Version 1)
Quarter: 2013Q2

REPORT INFORMATION
  Report Type: Spontaneous
  Country: US (occurrence: US)
  Receive Date: 20130617
  Receipt Date: 20130617
  Transmission Date: 20140414
  Serious: Yes (Hospitalization)
  Sender: FDA-Public Use
  Company Number: US-ROCHE-1236234

PATIENT
  Sex: Female

DRUGS (3)
  1. PEGASYS [Suspect]
     Indication: CHRONIC HEPATITIS C
     Route: 065
  2. RIBAVIRIN [Suspect]
     Indication: CHRONIC HEPATITIS C
     Route: 065
  3. METHADONE [Interacting]
     Indication: PAIN MANAGEMENT
     Route: 065

REACTIONS (9)
  - Dyspnoea [Unknown]
  - Confusional state [Unknown]
  - Vision blurred [Unknown]
  - Aggression [Unknown]
  - Anaemia [Unknown]
  - Suicidal ideation [Recovered/Resolved]
  - Nail bed disorder [Unknown]
  - Drug interaction [Unknown]
  - Visual acuity reduced [Unknown]
